FAERS Safety Report 4750599-0 (Version None)
Quarter: 2005Q3

REPORT INFORMATION
  Report Type: 
  Country: None (occurrence: None)
  Receive Date: 20050818
  Receipt Date: 20050808
  Transmission Date: 20060218
  Serious: Yes (Death, Hospitalization, Other)
  Sender: FDA-Public Use
  Company Number: 2005113110

PATIENT
  Age: 94 Year
  Sex: Female
  Weight: 48 kg

DRUGS (10)
  1. DALTEPARIN SODIUM [Suspect]
     Indication: ATRIAL FLUTTER
     Dosage: 10000 IE (5000 IE TWICE DAILY), SUBCUTANEOUS
     Route: 058
     Dates: start: 20050624, end: 20050702
  2. WARFARIN SODIUM [Suspect]
     Indication: ATRIAL FLUTTER
     Dosage: (2.5 MG), ORAL
     Route: 048
     Dates: start: 20050624, end: 20050702
  3. CARVEDILOL [Concomitant]
  4. DIGOXIN [Concomitant]
  5. RAMIPRIL [Concomitant]
  6. FUROSEMIDE [Concomitant]
  7. POTASSIUM CHLORIDE [Concomitant]
  8. LEVOTHYROXINE SODIUM [Concomitant]
  9. KODAMID (CAFFEINE, PHOSPHATE, ETHALLOBARBITAL, OXYPHENISATINE, PROPYPH [Concomitant]
  10. LORMETAZEPAM (LORMETAZEPAM) [Concomitant]

REACTIONS (13)
  - ABDOMINAL TENDERNESS [None]
  - ABDOMINAL WALL DISORDER [None]
  - ATRIAL FIBRILLATION [None]
  - BLOOD PRESSURE IMMEASURABLE [None]
  - BODY TEMPERATURE DECREASED [None]
  - CARDIAC FAILURE [None]
  - FALL [None]
  - INJECTION SITE HAEMORRHAGE [None]
  - INTRA-ABDOMINAL HAEMORRHAGE [None]
  - MITRAL VALVE INCOMPETENCE [None]
  - PAIN [None]
  - PERITONEAL CARCINOMA [None]
  - PULSE ABNORMAL [None]
